FAERS Safety Report 10011946 (Version 2)
Quarter: 2014Q2

REPORT INFORMATION
  Report Type: Spontaneous
  Country: US (occurrence: US)
  Receive Date: 20140314
  Receipt Date: 20140416
  Transmission Date: 20141212
  Serious: Yes (Other)
  Sender: FDA-Public Use
  Company Number: US-BRISTOL-MYERS SQUIBB COMPANY-20380937

PATIENT
  Age: 74 Year
  Sex: Female
  Weight: 61.22 kg

DRUGS (6)
  1. COUMADIN TABS 5 MG [Suspect]
     Dosage: REDUCED TO 2 AND HALF TAB OF 5 MG ON MONDAY,WEDNESDAY AND FRIDAY AND 5 MG ON REST OF THE DAYS
  2. PROCARDIA XL [Suspect]
  3. PROTONIX [Suspect]
  4. GLUCOTROL [Suspect]
  5. LIPITOR [Suspect]
  6. ACCUPRIL [Suspect]

REACTIONS (1)
  - Pneumonia [Recovered/Resolved]
